FAERS Safety Report 7474551-X (Version None)
Quarter: 2011Q2

REPORT INFORMATION
  Report Type: 
  Country: None (occurrence: None)
  Receive Date: 20110503
  Receipt Date: 20110420
  Transmission Date: 20111010
  Serious: Yes (Hospitalization, Other)
  Sender: FDA-Public Use
  Company Number: WAES 1011USA00380

PATIENT
  Age: 64 Year
  Sex: Female

DRUGS (7)
  1. MOGADON [Concomitant]
  2. MAGMIN [Concomitant]
  3. CAP VORINOSTAT [Suspect]
     Indication: MULTIPLE MYELOMA
     Dosage: 300 MG/DAILY, PO; 300 MG/DAILY, PO
     Route: 048
     Dates: start: 20100803, end: 20101101
  4. CAP VORINOSTAT [Suspect]
     Indication: MULTIPLE MYELOMA
     Dosage: 300 MG/DAILY, PO; 300 MG/DAILY, PO
     Route: 048
     Dates: start: 20101108, end: 20101122
  5. BORTEZOMIB [Suspect]
     Indication: MULTIPLE MYELOMA
     Dosage: 1.8 MG/M[2]/DAILY, IV
     Route: 042
     Dates: start: 20100903, end: 20101122
  6. LOMOTIL [Concomitant]
  7. TEMAZ [Concomitant]

REACTIONS (9)
  - ANAEMIA [None]
  - ATELECTASIS [None]
  - DISEASE PROGRESSION [None]
  - NEUROPATHY PERIPHERAL [None]
  - MULTIPLE MYELOMA [None]
  - THROMBOCYTOPENIA [None]
  - PNEUMOCYSTIS JIROVECI PNEUMONIA [None]
  - ACCIDENTAL OVERDOSE [None]
  - NAUSEA [None]
